FAERS Safety Report 16151093 (Version 2)
Quarter: 2019Q2

REPORT INFORMATION
  Report Type: Report from Study
  Country: None (occurrence: US)
  Receive Date: 20190402
  Receipt Date: 20190508
  Transmission Date: 20190711
  Serious: Yes (Hospitalization)
  Sender: FDA-Public Use
  Company Number: US-ABBVIE-19K-163-2687162-00

PATIENT
  Age: 36 Year
  Sex: Male

DRUGS (1)
  1. HUMIRA [Suspect]
     Active Substance: ADALIMUMAB
     Indication: CROHN^S DISEASE
     Route: 058

REACTIONS (11)
  - Food intolerance [Unknown]
  - Weight increased [Unknown]
  - Constipation [Unknown]
  - Anaemia [Unknown]
  - Arthralgia [Unknown]
  - Hospitalisation [Recovered/Resolved]
  - Fatigue [Unknown]
  - Blood iron decreased [Unknown]
  - Volvulus [Recovered/Resolved]
  - Intestinal obstruction [Recovered/Resolved]
  - Diarrhoea [Unknown]

NARRATIVE: CASE EVENT DATE: 201901
